FAERS Safety Report 8595524-X (Version None)
Quarter: 2012Q3

REPORT INFORMATION
  Report Type: 
  Country: None (occurrence: None)
  Receive Date: 20120815
  Receipt Date: 20120802
  Transmission Date: 20120928
  Serious: No
  Sender: FDA-Public Use
  Company Number: US-BAYER-2012-079310

PATIENT

DRUGS (2)
  1. EXCEDRIN [ACETYLSALICYLIC ACID,CAFFEINE,PARACETAMOL,SALICYLAMIDE] [Concomitant]
  2. ALEVE (CAPLET) [Suspect]
     Indication: MIGRAINE
     Route: 048

REACTIONS (2)
  - MIGRAINE [None]
  - INSOMNIA [None]
